FAERS Safety Report 19193608 (Version 1)
Quarter: 2021Q2

REPORT INFORMATION
  Report Type: Spontaneous
  Country: US (occurrence: US)
  Receive Date: 20210429
  Receipt Date: 20210429
  Transmission Date: 20210717
  Serious: No
  Sender: FDA-Public Use
  Company Number: US-GLENMARK PHARMACEUTICALS-2021GMK052373

PATIENT

DRUGS (2)
  1. TACROLIMUS. [Suspect]
     Active Substance: TACROLIMUS
     Dosage: SPARINGLY, 1 TUBE PER MONTH
     Route: 065
     Dates: start: 2020
  2. TACROLIMUS. [Suspect]
     Active Substance: TACROLIMUS
     Indication: VITILIGO
     Dosage: SPARINGLY, 1 TUBE PER MONTH
     Route: 065
     Dates: start: 20200604, end: 2020

REACTIONS (3)
  - Wrong technique in product usage process [Unknown]
  - Product use in unapproved indication [Unknown]
  - Product container seal issue [Unknown]

NARRATIVE: CASE EVENT DATE: 20200604
